FAERS Safety Report 21523205 (Version 1)
Quarter: 2022Q4

REPORT INFORMATION
  Report Type: Other
  Country: FR (occurrence: FR)
  Receive Date: 20221029
  Receipt Date: 20221029
  Transmission Date: 20230112
  Serious: Yes (Life-Threatening)
  Sender: FDA-Public Use
  Company Number: None

PATIENT

DRUGS (7)
  1. TAMSULOSIN [Suspect]
     Active Substance: TAMSULOSIN
     Indication: Product used for unknown indication
     Dosage: 0.4 MILLIGRAM, QD
     Route: 048
     Dates: start: 20220304, end: 20220306
  2. CEFTRIAXONE [Suspect]
     Active Substance: CEFTRIAXONE
     Indication: Colitis
     Dosage: 1000 MILLIGRAM, QD
     Route: 042
     Dates: start: 20220226, end: 20220306
  3. PANTOPRAZOLE [Suspect]
     Active Substance: PANTOPRAZOLE
     Indication: Haematemesis
     Dosage: 40 MILLIGRAM, QD
     Route: 042
     Dates: start: 20220226, end: 20220306
  4. METRONIDAZOLE [Suspect]
     Active Substance: METRONIDAZOLE
     Indication: Colitis
     Dosage: 1500 MILLIGRAM, QD
     Route: 042
     Dates: start: 20220226, end: 20220306
  5. FUNGIZONE [Suspect]
     Active Substance: AMPHOTERICIN B
     Indication: Gastrointestinal candidiasis
     Dosage: 300 MILLIGRAM, QD
     Route: 048
     Dates: start: 20220226, end: 20220306
  6. METOCLOPRAMIDE [Suspect]
     Active Substance: METOCLOPRAMIDE
     Indication: Nausea
     Dosage: 30 MILLIGRAM, QD
     Route: 042
     Dates: start: 20220226
  7. SACCHAROMYCES CEREVISIAE [Suspect]
     Active Substance: SACCHAROMYCES CEREVISIAE
     Indication: Colitis
     Dosage: 1600 MILLIGRAM, QD
     Route: 048
     Dates: start: 20220226, end: 20220306

REACTIONS (2)
  - Cardio-respiratory arrest [Recovered/Resolved]
  - Epileptic encephalopathy [Recovered/Resolved]

NARRATIVE: CASE EVENT DATE: 20220306
